FAERS Safety Report 4345152-7 (Version None)
Quarter: 2004Q2

REPORT INFORMATION
  Report Type: 
  Country: None (occurrence: None)
  Receive Date: 20040420
  Receipt Date: 20040324
  Transmission Date: 20050107
  Serious: Yes (Death, Hospitalization)
  Sender: FDA-Public Use
  Company Number: ES-JNJFOC-20040305389

PATIENT
  Age: 78 Year
  Sex: Male

DRUGS (6)
  1. HALOPERIDOL [Suspect]
     Dosage: 5 MG, 1 IN 1 DAY, INTRAVENOUS
     Route: 042
     Dates: start: 20040205, end: 20040205
  2. FUROSEMIDE INIBSA (FUROSEMIDE) AMPOULES [Concomitant]
  3. TAVANIC (LEVOFLOXACIN) [Concomitant]
  4. ACFOL (FOLIC ACID) [Concomitant]
  5. ALLOPURINOL [Concomitant]
  6. DABONAL (ENALAPRIL MALEATE) [Concomitant]

REACTIONS (2)
  - COAGULOPATHY [None]
  - NEUROLEPTIC MALIGNANT SYNDROME [None]
